FAERS Safety Report 6054498-6 (Version None)
Quarter: 2009Q1

REPORT INFORMATION
  Report Type: 
  Country: None (occurrence: None)
  Receive Date: 20090127
  Receipt Date: 20090115
  Transmission Date: 20090719
  Serious: Yes (Other)
  Sender: FDA-Public Use
  Company Number: PHHY2008RU31921

PATIENT
  Sex: Female
  Weight: 56.7 kg

DRUGS (4)
  1. ACLASTA [Suspect]
     Indication: OSTEOPOROSIS
     Dosage: 5 MG/DAY
     Route: 042
     Dates: start: 20081126, end: 20081126
  2. CALCIUM D3 NYCOMED [Concomitant]
     Indication: OSTEOPOROSIS
     Dosage: 500 MG / DAY
     Route: 048
  3. LOGEST [Concomitant]
     Indication: MENOPAUSE
     Dosage: 1 PILL/DAY
     Route: 048
     Dates: start: 20081130
  4. YARINA [Concomitant]
     Indication: MENOPAUSE
     Dosage: 1 PILL/DAY
     Route: 048
     Dates: end: 20081101

REACTIONS (7)
  - ABDOMINAL PAIN [None]
  - ALANINE AMINOTRANSFERASE INCREASED [None]
  - ASPARTATE AMINOTRANSFERASE INCREASED [None]
  - BLOOD BILIRUBIN INCREASED [None]
  - JAUNDICE [None]
  - NAUSEA [None]
  - PYREXIA [None]
